FAERS Safety Report 24075258 (Version 1)
Quarter: 2024Q3

REPORT INFORMATION
  Report Type: Spontaneous
  Country: US (occurrence: US)
  Receive Date: 20240710
  Receipt Date: 20240710
  Transmission Date: 20241017
  Serious: No
  Sender: ACCORD
  Company Number: US-Accord-389309

PATIENT
  Sex: Female

DRUGS (1)
  1. AMITRIPTYLINE [Suspect]
     Active Substance: AMITRIPTYLINE
     Indication: Irritable bowel syndrome
     Dosage: 25MG DAILY
     Route: 048

REACTIONS (1)
  - Off label use [Unknown]
